FAERS Safety Report 10365884 (Version 1)
Quarter: 2014Q3

REPORT INFORMATION
  Report Type: Spontaneous
  Country: US (occurrence: None)
  Receive Date: 20140804
  Receipt Date: 20140804
  Transmission Date: 20150326
  Serious: No
  Sender: FDA-Public Use
  Company Number: None

PATIENT
  Age: 31 Year
  Sex: Female
  Weight: 74.84 kg

DRUGS (1)
  1. DICLOXACILLIN DICLOXACILLIN 10MG [Suspect]
     Active Substance: DICLOXACILLIN
     Indication: MASTITIS
     Dosage: 1 DOSE BY MOUTH 4 TIMES A DAY FOUR TIMES DAILY TAKEN BY MOUTH
     Route: 048
     Dates: start: 20140721, end: 20140731

REACTIONS (4)
  - Discomfort [None]
  - Urticaria [None]
  - Rash [None]
  - Pruritus [None]

NARRATIVE: CASE EVENT DATE: 20140801
